FAERS Safety Report 8803467 (Version 1)
Quarter: 2012Q4

REPORT INFORMATION
  Report Type: 
  Country: NL (occurrence: NL)
  Receive Date: 20120924
  Receipt Date: 20120924
  Transmission Date: 20130627
  Serious: Yes (Hospitalization)
  Sender: FDA-Public Use
  Company Number: PHHY2012NL082156

PATIENT
  Age: 66 Year
  Sex: Female

DRUGS (13)
  1. SANDOSTATIN LAR [Suspect]
     Indication: POST GASTRIC SURGERY SYNDROME
     Dates: start: 2007
  2. PARACETAMOL [Concomitant]
  3. CODEINE [Concomitant]
  4. DICLOFENAC [Concomitant]
  5. NEXIUM [Concomitant]
  6. PANCREASE HL [Concomitant]
  7. DUSPATAL [Concomitant]
  8. TEMAZEPAM [Concomitant]
  9. COSEPT [Concomitant]
  10. FML [Concomitant]
  11. PREDNISOLONE [Concomitant]
  12. NOVORAPID [Concomitant]
  13. LANTUS [Concomitant]

REACTIONS (1)
  - Sepsis [Unknown]
